FAERS Safety Report 13019680 (Version 1)
Quarter: 2016Q4

REPORT INFORMATION
  Report Type: Spontaneous
  Country: US (occurrence: US)
  Receive Date: 20161212
  Receipt Date: 20161212
  Transmission Date: 20170207
  Serious: No
  Sender: FDA-Public Use
  Company Number: US-ROCHE-1805623

PATIENT
  Sex: Female

DRUGS (1)
  1. ACTEMRA [Suspect]
     Active Substance: TOCILIZUMAB
     Indication: ARTHRITIS
     Route: 065
     Dates: start: 20160421

REACTIONS (12)
  - Alopecia [Unknown]
  - Cough [Unknown]
  - Pyrexia [Unknown]
  - Hypertension [Unknown]
  - Injection site pain [Unknown]
  - Visual impairment [Unknown]
  - Rash [Unknown]
  - Asthenia [Unknown]
  - Liquid product physical issue [Unknown]
  - Fatigue [Unknown]
  - Vision blurred [Unknown]
  - Product quality issue [Unknown]
